FAERS Safety Report 13139965 (Version 1)
Quarter: 2020Q3

REPORT INFORMATION
  Report Type: Report from Study
  Country: RU (occurrence: RU)
  Receive Date: 20170123
  Receipt Date: 20170123
  Transmission Date: 20201104
  Serious: Yes (Hospitalization)
  Sender: FDA-Public Use
  Company Number: RU-JNJFOC-20170115583

PATIENT
  Age: 47 Year
  Sex: Male
  Weight: 65 kg

DRUGS (5)
  1. PLACEBO [Suspect]
     Active Substance: UNSPECIFIED INGREDIENT
     Indication: AXIAL SPONDYLOARTHRITIS
     Route: 058
     Dates: start: 20160914
  2. DICLOFENAC [Concomitant]
     Active Substance: DICLOFENAC
     Indication: AXIAL SPONDYLOARTHRITIS
     Route: 048
     Dates: start: 201603
  3. BLINDED; USTEKINUMA [Suspect]
     Active Substance: USTEKINUMAB
     Indication: AXIAL SPONDYLOARTHRITIS
     Route: 058
     Dates: start: 20160914
  4. PARACETAMOL [Concomitant]
     Active Substance: ACETAMINOPHEN
     Indication: RESPIRATORY TRACT INFECTION
     Route: 048
     Dates: start: 20170104, end: 20170107
  5. BLINDED; USTEKINUMA [Suspect]
     Active Substance: USTEKINUMAB
     Route: 058

REACTIONS (1)
  - Subdural haematoma [Not Recovered/Not Resolved]

NARRATIVE: CASE EVENT DATE: 20170109
